FAERS Safety Report 23418371 (Version 1)
Quarter: 2024Q1

REPORT INFORMATION
  Report Type: Spontaneous
  Country: US (occurrence: US)
  Receive Date: 20240118
  Receipt Date: 20240118
  Transmission Date: 20240409
  Serious: Yes (Other)
  Sender: FDA-Public Use
  Company Number: US-ENDO PHARMACEUTICALS INC-2023-000006

PATIENT
  Sex: Male
  Weight: 107 kg

DRUGS (21)
  1. ENDOCET [Suspect]
     Active Substance: ACETAMINOPHEN\OXYCODONE HYDROCHLORIDE
     Indication: Product used for unknown indication
     Dosage: UNK UNKNOWN, UNKNOWN
     Route: 065
  2. OXYCONTIN [Suspect]
     Active Substance: OXYCODONE HYDROCHLORIDE
     Indication: Product used for unknown indication
     Dosage: 1 DF, OD
     Route: 048
  3. OXYCONTIN [Suspect]
     Active Substance: OXYCODONE HYDROCHLORIDE
     Dosage: 1 DF, BID
     Route: 048
  4. OXYCODONE HYDROCHLORIDE [Suspect]
     Active Substance: OXYCODONE HYDROCHLORIDE
     Indication: Product used for unknown indication
     Dosage: 1 DF, UNKNOWN, EVERY SIX HOURS AS PER NEEDED (15 MG)
     Route: 048
  5. OXYCODONE HYDROCHLORIDE [Suspect]
     Active Substance: OXYCODONE HYDROCHLORIDE
     Dosage: UNK UNKNOWN, UNKNOWN, EVERY SIX HOURS AS PER NEEDED (15 MG)
     Route: 048
  6. OXYCODONE HYDROCHLORIDE [Suspect]
     Active Substance: OXYCODONE HYDROCHLORIDE
     Dosage: UNK UNKNOWN, UNKNOWN (30 MG)
     Route: 048
  7. HYDROMORPHONE [Suspect]
     Active Substance: HYDROMORPHONE
     Indication: Product used for unknown indication
     Dosage: 1 ML, UNKNOWN (1 MG)
     Route: 042
  8. HYDROMORPHONE [Suspect]
     Active Substance: HYDROMORPHONE
     Dosage: UNK UNKNOWN, UNKNOWN (2 MG)
     Route: 065
  9. ACETAMINOPHEN\HYDROCODONE [Suspect]
     Active Substance: ACETAMINOPHEN\HYDROCODONE
     Indication: Product used for unknown indication
     Dosage: UNK UNKNOWN, UNKNOWN (10/500 MG)
     Route: 065
  10. ACETAMINOPHEN\HYDROCODONE [Suspect]
     Active Substance: ACETAMINOPHEN\HYDROCODONE
     Dosage: UNK UNKNOWN, UNKNOWN (10/325 MG)
     Route: 065
  11. ACETAMINOPHEN\HYDROCODONE [Suspect]
     Active Substance: ACETAMINOPHEN\HYDROCODONE
     Dosage: UNK UNKNOWN, UNKNOWN (7.5/325 MG)
     Route: 065
  12. ACETAMINOPHEN\HYDROCODONE BITARTRATE [Suspect]
     Active Substance: ACETAMINOPHEN\HYDROCODONE BITARTRATE
     Indication: Product used for unknown indication
     Dosage: UNK UNKNOWN, UNKNOWN (5/500)
     Route: 065
  13. METHADONE HYDROCHLORIDE [Suspect]
     Active Substance: METHADONE HYDROCHLORIDE
     Indication: Product used for unknown indication
     Dosage: UNK UNKNOWN, UNKNOWN
     Route: 065
  14. OXYCODONE [Suspect]
     Active Substance: OXYCODONE
     Indication: Product used for unknown indication
     Dosage: UNK UNKNOWN, UNKNOWN (6 TABLETS, EVERY SIX HOURS) AS PER NEEDED (30 MG)
     Route: 048
  15. OXYCODONE [Suspect]
     Active Substance: OXYCODONE
     Dosage: UNK UNKNOWN, UNKNOWN (15 MG)
     Route: 048
  16. OXYCODONE [Suspect]
     Active Substance: OXYCODONE
     Dosage: 2 DF, UNKNOWN (10 MG)
     Route: 048
  17. OXYCODONE [Suspect]
     Active Substance: OXYCODONE
     Dosage: 1 DF, UNKNOWN (5 MG)
     Route: 048
  18. MORPHINE SULFATE [Suspect]
     Active Substance: MORPHINE SULFATE
     Indication: Product used for unknown indication
     Dosage: UNK UNKNOWN, UNKNOWN
     Route: 065
  19. MORPHINE [Suspect]
     Active Substance: MORPHINE
     Indication: Pain
     Dosage: 1 ML, UNKNOWN (EVERY THREE HOURS), (4 MG)
     Route: 042
  20. MORPHINE [Suspect]
     Active Substance: MORPHINE
     Dosage: 1 ML, UNKNOWN (EVERY THREE HOURS), (2 MG)
     Route: 042
  21. MORPHINE [Suspect]
     Active Substance: MORPHINE
     Dosage: 1.25 ML, UNKNOWN (5 MG)
     Route: 042

REACTIONS (1)
  - Drug dependence [Unknown]
